FAERS Safety Report 5964405-X (Version None)
Quarter: 2008Q4

REPORT INFORMATION
  Report Type: 
  Country: None (occurrence: None)
  Receive Date: 20081124
  Receipt Date: 20081118
  Transmission Date: 20090506
  Serious: Yes (Death, Hospitalization)
  Sender: FDA-Public Use
  Company Number: BE-PFIZER INC-2008098080

PATIENT
  Sex: Female

DRUGS (1)
  1. SU-011,248 [Suspect]
     Route: 048
     Dates: start: 20080731, end: 20081009

REACTIONS (4)
  - ANOREXIA [None]
  - DYSPNOEA [None]
  - PERFORMANCE STATUS DECREASED [None]
  - THROMBOCYTOPENIA [None]
